FAERS Safety Report 20646199 (Version 3)
Quarter: 2022Q4

REPORT INFORMATION
  Report Type: Report from Study
  Country: GB (occurrence: GB)
  Receive Date: 20220329
  Receipt Date: 20221006
  Transmission Date: 20230113
  Serious: Yes (Other)
  Sender: FDA-Public Use
  Company Number: GB-SUN PHARMACEUTICAL INDUSTRIES LTD-2022RR-330940

PATIENT
  Age: 23 Year
  Sex: Male

DRUGS (69)
  1. RISPERIDONE [Suspect]
     Active Substance: RISPERIDONE
     Indication: Schizophrenia
     Dosage: 1 MILLIGRAM, UNK
     Route: 065
  2. RISPERIDONE [Suspect]
     Active Substance: RISPERIDONE
     Indication: Schizophrenia
     Dosage: 2 MILLIGRAM, UNK
     Route: 065
  3. RISPERIDONE [Suspect]
     Active Substance: RISPERIDONE
     Indication: Schizophrenia
     Dosage: 3 MILLIGRAM, UNK
     Route: 065
  4. RISPERIDONE [Suspect]
     Active Substance: RISPERIDONE
     Indication: Schizophrenia
     Dosage: 4 MILLIGRAM, UNK
     Route: 065
  5. OLANZAPINE [Suspect]
     Active Substance: OLANZAPINE
     Indication: Schizophrenia
     Dosage: 5 MILLIGRAM, UNK
     Route: 065
  6. OLANZAPINE [Suspect]
     Active Substance: OLANZAPINE
     Indication: Schizophrenia
     Dosage: 10 MILLIGRAM, UNK
     Route: 065
  7. OLANZAPINE [Suspect]
     Active Substance: OLANZAPINE
     Dosage: 15 MILLIGRAM, UNK
     Route: 065
  8. OLANZAPINE [Suspect]
     Active Substance: OLANZAPINE
     Dosage: 20 MILLIGRAM, UNK
     Route: 065
  9. OLANZAPINE [Suspect]
     Active Substance: OLANZAPINE
     Dosage: 5 MILLIGRAM, UNK
     Route: 065
  10. OLANZAPINE [Suspect]
     Active Substance: OLANZAPINE
     Indication: Schizophrenia
     Dosage: 5 MILLIGRAM, UNK
     Route: 065
  11. OLANZAPINE [Suspect]
     Active Substance: OLANZAPINE
     Indication: Schizophrenia
     Dosage: 10 MILLIGRAM, UNK
     Route: 065
  12. OLANZAPINE [Suspect]
     Active Substance: OLANZAPINE
     Dosage: 2.5 MILLIGRAM, UNK
     Route: 065
  13. OLANZAPINE [Suspect]
     Active Substance: OLANZAPINE
     Indication: Schizophrenia
     Dosage: 10 MILLIGRAM, UNK
     Route: 065
  14. OLANZAPINE [Suspect]
     Active Substance: OLANZAPINE
     Indication: Schizophrenia
     Dosage: 10 MILLIGRAM, UNK
     Route: 065
  15. OLANZAPINE [Suspect]
     Active Substance: OLANZAPINE
     Dosage: 15 MILLIGRAM, UNK
     Route: 065
  16. OLANZAPINE [Suspect]
     Active Substance: OLANZAPINE
     Dosage: 5 MILLIGRAM, UNK
     Route: 065
  17. OLANZAPINE [Suspect]
     Active Substance: OLANZAPINE
     Dosage: 7.5 MILLIGRAM, UNK
     Route: 065
  18. OLANZAPINE [Suspect]
     Active Substance: OLANZAPINE
     Indication: Schizophrenia
     Dosage: 15 MILLIGRAM, UNK
  19. OLANZAPINE [Suspect]
     Active Substance: OLANZAPINE
     Dosage: 20 MILLIGRAM, UNK
     Route: 065
  20. OLANZAPINE [Suspect]
     Active Substance: OLANZAPINE
     Dosage: 5 MILLIGRAM, UNK
     Route: 065
  21. OLANZAPINE [Suspect]
     Active Substance: OLANZAPINE
     Indication: Schizophrenia
     Dosage: 210 MILLIGRAM, DEPOT
     Route: 065
  22. OLANZAPINE [Suspect]
     Active Substance: OLANZAPINE
     Dosage: 300 MILLIGRAM, DEPOT
     Route: 065
  23. OLANZAPINE [Suspect]
     Active Substance: OLANZAPINE
     Dosage: 405 MILLIGRAM, DEPOT
     Route: 065
  24. RISPERIDONE [Suspect]
     Active Substance: RISPERIDONE
     Indication: Schizophrenia
     Dosage: 1 MG/1ML LIQ
     Route: 065
  25. RISPERIDONE [Suspect]
     Active Substance: RISPERIDONE
     Indication: Schizophrenia
     Dosage: 1 MILLIGRAM, UNK
     Route: 065
  26. RISPERIDONE [Suspect]
     Active Substance: RISPERIDONE
     Indication: Schizophrenia
     Dosage: 2 MILLIGRAM, UNK
     Route: 065
  27. RISPERIDONE [Suspect]
     Active Substance: RISPERIDONE
     Dosage: 4 MILLIGRAM, UNK
     Route: 065
  28. RISPERIDONE [Suspect]
     Active Substance: RISPERIDONE
     Dosage: 500 MICROGRAM, UNK
     Route: 065
  29. RISPERDAL CONSTA [Suspect]
     Active Substance: RISPERIDONE
     Indication: Schizophrenia
     Dosage: 25 MILLIGRAM, UNK
     Route: 065
  30. RISPERDAL CONSTA [Suspect]
     Active Substance: RISPERIDONE
     Dosage: 37.5 MILLIGRAM, UNK
     Route: 065
  31. RISPERDAL CONSTA [Suspect]
     Active Substance: RISPERIDONE
     Dosage: 50 MILLIGRAM, UNK
     Route: 065
  32. RISPERDAL [Suspect]
     Active Substance: RISPERIDONE
     Indication: Schizophrenia
     Dosage: 250 MICROGRAM, UNK
     Route: 065
  33. RISPERIDONE [Suspect]
     Active Substance: RISPERIDONE
     Indication: Schizophrenia
     Dosage: 500 MICROGRAM, UNK
     Route: 065
  34. RISPERIDONE [Suspect]
     Active Substance: RISPERIDONE
     Indication: Schizophrenia
     Dosage: 6 MILLIGRAM, UNK
     Route: 065
  35. ARIPIPRAZOLE [Suspect]
     Active Substance: ARIPIPRAZOLE
     Indication: Schizophrenia
     Dosage: 1 MG/ML, UNK
     Route: 065
  36. ARIPIPRAZOLE [Suspect]
     Active Substance: ARIPIPRAZOLE
     Indication: Schizophrenia
     Dosage: 10 MILLIGRAM, UNK
     Route: 065
  37. ARIPIPRAZOLE [Suspect]
     Active Substance: ARIPIPRAZOLE
     Dosage: 15 MILLIGRAM, UNK
     Route: 065
  38. ARIPIPRAZOLE [Suspect]
     Active Substance: ARIPIPRAZOLE
     Indication: Schizophrenia
     Dosage: 10 MILLIGRAM, UNK
     Route: 065
  39. ARIPIPRAZOLE [Suspect]
     Active Substance: ARIPIPRAZOLE
     Dosage: 15 MILLIGRAM, UNK
     Route: 065
  40. ABILIFY [Suspect]
     Active Substance: ARIPIPRAZOLE
     Indication: Schizophrenia
     Dosage: 400 MILLIGRAM VIALS + PFS
     Route: 065
  41. ABILIFY [Suspect]
     Active Substance: ARIPIPRAZOLE
     Dosage: 9.75MG/1.3ML, UNK
     Route: 065
  42. ARIPIPRAZOLE [Suspect]
     Active Substance: ARIPIPRAZOLE
     Indication: Schizophrenia
     Dosage: 5 MILLIGRAM, UNK
     Route: 065
  43. HALOPERIDOL [Suspect]
     Active Substance: HALOPERIDOL
     Indication: Schizophrenia
     Dosage: 1.5 MILLIGRAM, UNK
     Route: 065
  44. HALOPERIDOL [Suspect]
     Active Substance: HALOPERIDOL
     Dosage: 5 MILLIGRAM, UNK
     Route: 065
  45. HALOPERIDOL [Suspect]
     Active Substance: HALOPERIDOL
     Dosage: 500 MICROGRAM, UNK
     Route: 065
  46. HALOPERIDOL [Suspect]
     Active Substance: HALOPERIDOL
     Indication: Schizophrenia
     Dosage: 10 MILLIGRAM/5ML, UNK
     Route: 065
  47. HALOPERIDOL [Suspect]
     Active Substance: HALOPERIDOL
     Dosage: 5 MILLIGRAM/5ML, UNK
     Route: 065
  48. HALOPERIDOL [Suspect]
     Active Substance: HALOPERIDOL
     Indication: Schizophrenia
     Dosage: 10 MILLIGRAM, UNK
     Route: 065
  49. HALOPERIDOL [Suspect]
     Active Substance: HALOPERIDOL
     Indication: Schizophrenia
     Dosage: 5MG/1ML, UNK
     Route: 065
  50. HALDOL [Suspect]
     Active Substance: HALOPERIDOL
     Indication: Schizophrenia
     Dosage: 100MG/1ML DEPOT
     Route: 065
  51. HALDOL [Suspect]
     Active Substance: HALOPERIDOL
     Dosage: 50MG/1ML DEPOT
     Route: 065
  52. CLOZAPINE [Suspect]
     Active Substance: CLOZAPINE
     Indication: Schizophrenia
     Dosage: 100 MILLIGRAM, UNK
     Route: 065
  53. CLOZAPINE [Suspect]
     Active Substance: CLOZAPINE
     Dosage: 12.5 MILLIGRAM, UNK
     Route: 065
  54. CLOZAPINE [Suspect]
     Active Substance: CLOZAPINE
     Dosage: 200 MILLIGRAM, UNK
     Route: 065
  55. CLOZAPINE [Suspect]
     Active Substance: CLOZAPINE
     Dosage: 25 MILLIGRAM, UNK
     Route: 065
  56. CLOZAPINE [Suspect]
     Active Substance: CLOZAPINE
     Dosage: 50 MILLIGRAM, UNK
     Route: 065
  57. CLOZAPINE [Suspect]
     Active Substance: CLOZAPINE
     Indication: Schizophrenia
     Dosage: 100 MILLIGRAM, UNK
     Route: 065
  58. CLOZAPINE [Suspect]
     Active Substance: CLOZAPINE
     Dosage: 25 MILLIGRAM, UNK
     Route: 065
  59. CLOZAPINE [Suspect]
     Active Substance: CLOZAPINE
     Indication: Schizophrenia
     Dosage: 25MG/1ML, UNK
     Route: 065
  60. CLOZAPINE [Suspect]
     Active Substance: CLOZAPINE
     Indication: Schizophrenia
     Dosage: 50 MG/1ML, UNK
     Route: 065
  61. INVEGA SUSTENNA [Suspect]
     Active Substance: PALIPERIDONE PALMITATE
     Indication: Schizophrenia
     Dosage: 25 MILLIGRAM, UNK
     Route: 065
  62. PALIPERIDONE [Suspect]
     Active Substance: PALIPERIDONE
     Indication: Schizophrenia
     Dosage: 50 MILLIGRAM, UNK
     Route: 065
  63. PALIPERIDONE [Suspect]
     Active Substance: PALIPERIDONE
     Dosage: 75 MILLIGRAM, UNK
     Route: 065
  64. PALIPERIDONE [Suspect]
     Active Substance: PALIPERIDONE
     Dosage: 150 MILLIGRAM, UNK
     Route: 065
  65. PALIPERIDONE PALMITATE [Suspect]
     Active Substance: PALIPERIDONE PALMITATE
     Indication: Schizophrenia
     Dosage: 175 MILLIGRAM, UNK
     Route: 065
  66. PALIPERIDONE PALMITATE [Suspect]
     Active Substance: PALIPERIDONE PALMITATE
     Dosage: 263 MILLIGRAM, UNK
     Route: 065
  67. PALIPERIDONE PALMITATE [Suspect]
     Active Substance: PALIPERIDONE PALMITATE
     Dosage: 350 MILLIGRAM, UNK
     Route: 065
  68. SCOPOLAMINE HYDROBROMIDE [Concomitant]
     Active Substance: SCOPOLAMINE HYDROBROMIDE
     Indication: Product used for unknown indication
     Dosage: UNK
     Route: 065
  69. BISOPROLOL [Concomitant]
     Active Substance: BISOPROLOL
     Indication: Product used for unknown indication
     Dosage: UNK
     Route: 065

REACTIONS (3)
  - Salivary hypersecretion [Unknown]
  - Tachycardia [Unknown]
  - Therapeutic product effect incomplete [Unknown]
